FAERS Safety Report 4747853-5 (Version None)
Quarter: 2005Q3

REPORT INFORMATION
  Report Type: 
  Country: None (occurrence: None)
  Receive Date: 20050818
  Receipt Date: 20050621
  Transmission Date: 20060218
  Serious: Yes (Other)
  Sender: FDA-Public Use
  Company Number: US-BRISTOL-MYERS SQUIBB COMPANY-13010723

PATIENT
  Age: 17 Year

DRUGS (1)
  1. MEGACE [Suspect]
     Dates: start: 20050401

REACTIONS (1)
  - ADRENAL INSUFFICIENCY [None]
